FAERS Safety Report 4449562-9 (Version None)
Quarter: 2004Q3

REPORT INFORMATION
  Report Type: 
  Country: None (occurrence: None)
  Receive Date: 20040913
  Receipt Date: 20040913
  Transmission Date: 20050211
  Serious: Yes (Disabling)
  Sender: FDA-Public Use
  Company Number: None

PATIENT
  Age: 63 Year
  Sex: Female
  Weight: 47.6277 kg

DRUGS (1)
  1. THURAFLU COLD AND COUGH NOVARTIS CONSUMER HEALTH, INC [Suspect]
     Dosage: 3:00 AM EVERY 4 HOURS ORAL
     Route: 048
     Dates: start: 20040418, end: 20040419

REACTIONS (2)
  - PERSONALITY DISORDER [None]
  - THINKING ABNORMAL [None]
